FAERS Safety Report 8211609-1 (Version None)
Quarter: 2012Q1

REPORT INFORMATION
  Report Type: 
  Country: None (occurrence: None)
  Receive Date: 20120228
  Receipt Date: 20110920
  Transmission Date: 20120608
  Serious: Yes (Hospitalization, Other)
  Sender: FDA-Public Use
  Company Number: RB-32258-2011

PATIENT
  Age: 61 Year
  Sex: Male

DRUGS (2)
  1. BUPRENORPHINE HCL [Suspect]
     Indication: DRUG DEPENDENCE
     Dosage: VARIOUS DOSES, SUBLINGUAL
     Route: 060
     Dates: start: 20110901
  2. BUPRENORPHINE HCL [Suspect]
     Indication: DRUG DEPENDENCE
     Dosage: VARIOUS DOSES, SUBLINGUAL
     Route: 060
     Dates: start: 20101001, end: 20110601

REACTIONS (4)
  - ASTHENIA [None]
  - WRONG TECHNIQUE IN DRUG USAGE PROCESS [None]
  - SUBSTANCE ABUSE [None]
  - DRUG WITHDRAWAL SYNDROME [None]
